FAERS Safety Report 8226359-5 (Version None)
Quarter: 2012Q1

REPORT INFORMATION
  Report Type: 
  Country: None (occurrence: None)
  Receive Date: 20120321
  Receipt Date: 20120315
  Transmission Date: 20120608
  Serious: Yes (Other)
  Sender: FDA-Public Use
  Company Number: US-AMGEN-USASP2011018329

PATIENT
  Age: 75 Year
  Sex: Female

DRUGS (10)
  1. VENASTAT                           /01329703/ [Concomitant]
     Dosage: UNK
  2. BENADRYL [Suspect]
     Dosage: 50 MG, UNK
  3. RANITIDINE [Concomitant]
     Dosage: UNK
  4. PROLIA [Suspect]
     Indication: OSTEOPOROSIS POSTMENOPAUSAL
     Dates: start: 20110323
  5. METOPROLOL SUCCINATE [Concomitant]
  6. CYMBALTA [Concomitant]
  7. CALCIUM CARBONATE [Concomitant]
  8. XANAX [Concomitant]
  9. VITAMIN D [Concomitant]
  10. FISH OIL [Concomitant]

REACTIONS (7)
  - LIP DRY [None]
  - PRURITUS [None]
  - FEELING ABNORMAL [None]
  - LIP SWELLING [None]
  - MYALGIA [None]
  - HEADACHE [None]
  - PAIN IN JAW [None]
